FAERS Safety Report 7811104-5 (Version None)
Quarter: 2011Q4

REPORT INFORMATION
  Report Type: 
  Country: None (occurrence: None)
  Receive Date: 20111013
  Receipt Date: 20111006
  Transmission Date: 20120403
  Serious: Yes (Other)
  Sender: FDA-Public Use
  Company Number: RU-ABBOTT-11P-251-0863102-00

PATIENT
  Age: 27 Year
  Sex: Female

DRUGS (1)
  1. DEPAKENE [Suspect]
     Indication: IDIOPATHIC GENERALISED EPILEPSY
     Route: 048
     Dates: start: 20060101

REACTIONS (1)
  - CONVULSION [None]
